FAERS Safety Report 7683608-X (Version None)
Quarter: 2011Q3

REPORT INFORMATION
  Report Type: 
  Country: None (occurrence: None)
  Receive Date: 20110815
  Receipt Date: 20110804
  Transmission Date: 20111222
  Serious: Yes (Other)
  Sender: FDA-Public Use
  Company Number: US-ASTRAZENECA-2010SE55722

PATIENT
  Age: 67 Year
  Sex: Female
  Weight: 90.7 kg

DRUGS (10)
  1. IMODIUM [Concomitant]
  2. SONATA [Concomitant]
  3. SEROQUEL [Suspect]
     Indication: POST-TRAUMATIC STRESS DISORDER
     Dosage: 100 MG AM AND PM AND 400 MG HS
     Route: 048
  4. ESTRADIOL [Concomitant]
  5. NEXIUM [Suspect]
     Route: 048
  6. APRAZALEM [Concomitant]
  7. NUVIGIL [Concomitant]
  8. ENALAPRIL MALEATE [Concomitant]
  9. PRAVASTATIN [Concomitant]
  10. DIOVAN [Concomitant]

REACTIONS (13)
  - WRIST FRACTURE [None]
  - DIVERTICULITIS [None]
  - VOMITING [None]
  - WRONG DRUG ADMINISTERED [None]
  - VIITH NERVE INJURY [None]
  - STRESS [None]
  - LOWER LIMB FRACTURE [None]
  - FALL [None]
  - WEIGHT INCREASED [None]
  - DYSURIA [None]
  - DIARRHOEA [None]
  - PYREXIA [None]
  - WEIGHT LOSS POOR [None]
